FAERS Safety Report 20457208 (Version 1)
Quarter: 2022Q1

REPORT INFORMATION
  Report Type: Spontaneous
  Country: MT (occurrence: MT)
  Receive Date: 20220210
  Receipt Date: 20220210
  Transmission Date: 20220423
  Serious: Yes (Life-Threatening, Hospitalization)
  Sender: FDA-Public Use
  Company Number: MT-MYLANLABS-2022M1011509

PATIENT
  Age: 85 Year
  Sex: Male

DRUGS (1)
  1. APIXABAN [Suspect]
     Active Substance: APIXABAN
     Indication: Anticoagulant therapy
     Dosage: 5 MILLIGRAM, BID
     Route: 065

REACTIONS (4)
  - Arterial haemorrhage [Recovering/Resolving]
  - Pulmonary oedema [Unknown]
  - Renal impairment [Unknown]
  - Haemoglobin decreased [Recovering/Resolving]
